FAERS Safety Report 11219928 (Version 1)
Quarter: 2015Q2

REPORT INFORMATION
  Report Type: Spontaneous
  Country: US (occurrence: US)
  Receive Date: 20150625
  Receipt Date: 20150625
  Transmission Date: 20150821
  Serious: Yes (Other)
  Sender: FDA-Public Use
  Company Number: US-ASTRAZENECA-2015SE60683

PATIENT
  Sex: Female

DRUGS (2)
  1. VERSED [Interacting]
     Active Substance: MIDAZOLAM HYDROCHLORIDE
     Route: 065
  2. TOPROL XL [Suspect]
     Active Substance: METOPROLOL SUCCINATE
     Route: 048

REACTIONS (1)
  - Drug interaction [Unknown]
